FAERS Safety Report 14449307 (Version 5)
Quarter: 2018Q1

REPORT INFORMATION
  Report Type: Report from Study
  Country: PL (occurrence: PL)
  Receive Date: 20180127
  Receipt Date: 20180306
  Transmission Date: 20180509
  Serious: Yes (Hospitalization)
  Sender: FDA-Public Use
  Company Number: PL-AMGEN-POLCT2018009963

PATIENT
  Age: 64 Year
  Sex: Male
  Weight: 90.6 kg

DRUGS (24)
  1. CLOPIDOGREL [Concomitant]
     Active Substance: CLOPIDOGREL BISULFATE
     Dosage: 75 MG, UNK
  2. POLPRIL [Concomitant]
     Active Substance: RAMIPRIL
     Dosage: 2.5 MG, UNK
     Dates: start: 20170425, end: 20180108
  3. FUROSEMID [Concomitant]
     Active Substance: FUROSEMIDE
     Dosage: 1 UNK, UNK
     Dates: start: 20170425
  4. VICEBROL [Concomitant]
     Active Substance: VINPOCETINE
     Dosage: 1 UNK, UNK
     Dates: start: 20170425
  5. MAGNE B6 [Concomitant]
     Active Substance: MAGNESIUM\PYRIDOXINE
     Dosage: 1 UNK, UNK
     Dates: start: 20170425
  6. POLOCARD [Concomitant]
     Active Substance: ASPIRIN
     Dosage: 150 MG, UNK
     Dates: start: 20171014
  7. PREFILLED AUTOINJECTOR/PEN [Suspect]
     Active Substance: DEVICE
     Indication: DYSLIPIDAEMIA
     Dosage: UNK
     Route: 058
     Dates: start: 20160903
  8. NEBILENIN [Concomitant]
     Dosage: 2.5 MG, UNK
     Dates: start: 20170707
  9. IPOREL [Concomitant]
     Active Substance: CLONIDINE
     Dosage: 1 UNK, UNK
     Dates: start: 20170708, end: 20180122
  10. EVOLOCUMAB [Suspect]
     Active Substance: EVOLOCUMAB
     Indication: DYSLIPIDAEMIA
     Dosage: 1 ML, UNK
     Route: 058
     Dates: start: 20160903
  11. ATORVASTEROL [Concomitant]
     Active Substance: ATORVASTATIN
     Indication: DYSLIPIDAEMIA
     Dosage: 40 MG, UNK
     Dates: start: 20170816
  12. HUMALOG [Concomitant]
     Active Substance: INSULIN LISPRO
     Dosage: 1 UNK, UNK
     Dates: start: 20170425
  13. FORMETIC [Concomitant]
     Dosage: 500 MG, UNK
     Dates: start: 20170425
  14. ASPIRIN. [Concomitant]
     Active Substance: ASPIRIN
     Dosage: UNK
  15. ENOXAPARIN [Concomitant]
     Active Substance: ENOXAPARIN
     Dosage: UNK
  16. ACARD [Concomitant]
     Active Substance: ASPIRIN
     Dosage: 75 MG, UNK
     Dates: start: 20170425, end: 20171013
  17. MILURIT [Concomitant]
     Active Substance: ALLOPURINOL
     Dosage: 300 MG, UNK
     Dates: start: 20170617
  18. NEUROVIT [Concomitant]
     Dosage: 1 UNK, UNK
     Dates: start: 20170816
  19. THIOGAMMA [Concomitant]
     Active Substance: THIOCTIC ACID
     Dosage: 600 MG, UNK
     Dates: start: 20170816, end: 20180123
  20. INSULIN [Concomitant]
     Active Substance: INSULIN NOS
     Dosage: UNK
  21. BIOTROPIL [Concomitant]
     Dosage: 1.2 G, UNK
     Dates: start: 20170816
  22. AMLOZEK [Concomitant]
     Active Substance: AMLODIPINE BESYLATE
     Dosage: 10 MUG, UNK
     Dates: start: 20170425
  23. IPP [Concomitant]
     Active Substance: PANTOPRAZOLE SODIUM
     Dosage: 20 MG, UNK
     Dates: start: 20170425
  24. CARDURAXL [Concomitant]
     Active Substance: DOXAZOSIN MESYLATE
     Dosage: 8 MG, UNK
     Dates: start: 20170809

REACTIONS (1)
  - Carotid artery occlusion [Recovered/Resolved]

NARRATIVE: CASE EVENT DATE: 20180102
